FAERS Safety Report 24601355 (Version 1)
Quarter: 2024Q4

REPORT INFORMATION
  Report Type: Spontaneous
  Country: KP (occurrence: KP)
  Receive Date: 20241111
  Receipt Date: 20241111
  Transmission Date: 20250114
  Serious: Yes (Other)
  Sender: ENDO
  Company Number: KP-ENDO USA, INC.-2024-050611

PATIENT
  Age: 5 Decade
  Sex: Male

DRUGS (3)
  1. GANCICLOVIR [Suspect]
     Active Substance: GANCICLOVIR
     Indication: Cytomegalovirus chorioretinitis
     Dosage: UNK UNKNOWN, SINGLE (8-FOLD HIGHER THAN USUAL, 15 MG/0.3 ML)
  2. GANCICLOVIR [Suspect]
     Active Substance: GANCICLOVIR
     Dosage: UNK UNKNOWN, UNKNOWN
  3. GANCICLOVIR [Suspect]
     Active Substance: GANCICLOVIR
     Dosage: UNK UNKNOWN, UNKNOWN
     Route: 042

REACTIONS (8)
  - Retinopathy [Not Recovered/Not Resolved]
  - Macular degeneration [Not Recovered/Not Resolved]
  - Optic atrophy [Not Recovered/Not Resolved]
  - Retinal vascular disorder [Not Recovered/Not Resolved]
  - Retinal oedema [Not Recovered/Not Resolved]
  - Blindness [Not Recovered/Not Resolved]
  - Accidental overdose [Recovered/Resolved]
  - Off label use [Recovered/Resolved]
